FAERS Safety Report 9826865 (Version 1)
Quarter: 2013Q4

REPORT INFORMATION
  Report Type: Spontaneous
  Country: US (occurrence: None)
  Receive Date: 20131112
  Receipt Date: 20131112
  Transmission Date: 20140711
  Serious: Yes (Other)
  Sender: FDA-Public Use
  Company Number: US-012831

PATIENT
  Age: 66 Year
  Sex: Male
  Weight: 79.38 kg

DRUGS (3)
  1. PICO-SALAX (NOT SPECIFIED) [Suspect]
     Indication: BOWEL PREPARATION
     Dosage: 1ST DOSE AT 3:30 PM ON 25 AUG 2013; 2ND DOSE AT 12:00 PM ON 26 OCT 2013 ORAL
     Route: 048
     Dates: start: 20130825, end: 20130826
  2. CARBATROL [Concomitant]
  3. HYDROCODONE [Concomitant]

REACTIONS (2)
  - Drug ineffective [None]
  - Abdominal distension [None]
